FAERS Safety Report 23143386 (Version 2)
Quarter: 2023Q4

REPORT INFORMATION
  Report Type: Spontaneous
  Country: CN (occurrence: CN)
  Receive Date: 20231103
  Receipt Date: 20231107
  Transmission Date: 20240110
  Serious: Yes (Hospitalization, Disabling, Other)
  Sender: FDA-Public Use
  Company Number: CN-009507513-2311CHN000121

PATIENT
  Age: 67 Year
  Sex: Male
  Weight: 64 kg

DRUGS (1)
  1. KEYTRUDA [Suspect]
     Active Substance: PEMBROLIZUMAB
     Indication: Drug therapy
     Dosage: 200 MG, ONCE, IV DRIP
     Route: 041
     Dates: start: 20230815, end: 20230815

REACTIONS (26)
  - Musculoskeletal stiffness [Unknown]
  - Asthenia [Unknown]
  - Gait disturbance [Unknown]
  - Dysphagia [Unknown]
  - Thyroxine decreased [Unknown]
  - Tri-iodothyronine decreased [Unknown]
  - Tri-iodothyronine free decreased [Unknown]
  - Thyroxine free decreased [Unknown]
  - Blood thyroid stimulating hormone increased [Unknown]
  - Liver injury [Recovering/Resolving]
  - Blood uric acid decreased [Unknown]
  - Blood creatine increased [Unknown]
  - Blood lactate dehydrogenase increased [Unknown]
  - Myoglobin blood increased [Unknown]
  - Blood phosphorus decreased [Unknown]
  - Blood sodium decreased [Unknown]
  - Blood chloride decreased [Unknown]
  - Lipase increased [Unknown]
  - Blood creatine phosphokinase increased [Recovering/Resolving]
  - Heart-type fatty acid-binding protein increased [Unknown]
  - Neutrophil count increased [Unknown]
  - Lymphocyte count decreased [Unknown]
  - White blood cell count increased [Unknown]
  - Red blood cell count decreased [Unknown]
  - Haemoglobin decreased [Unknown]
  - Haematocrit decreased [Unknown]

NARRATIVE: CASE EVENT DATE: 20230817
